FAERS Safety Report 18055861 (Version 1)
Quarter: 2020Q3

REPORT INFORMATION
  Report Type: Report from Study
  Country: MX (occurrence: MX)
  Receive Date: 20200722
  Receipt Date: 20200722
  Transmission Date: 20201103
  Serious: Yes (Death, Other)
  Sender: FDA-Public Use
  Company Number: MX-UCBSA-2020028587

PATIENT
  Sex: Male
  Weight: 13.5 kg

DRUGS (4)
  1. LEVETIRACETAM. [Suspect]
     Active Substance: LEVETIRACETAM
     Dosage: 3 MILLILITER, 2X/DAY (BID)
     Route: 048
  2. LEVETIRACETAM. [Suspect]
     Active Substance: LEVETIRACETAM
     Dosage: 1 MILLILITER, 2X/DAY (BID)
     Route: 048
  3. LEVETIRACETAM. [Suspect]
     Active Substance: LEVETIRACETAM
     Dosage: 1.5 MILLILITER, 2X/DAY (BID)
     Route: 048
  4. LEVETIRACETAM. [Suspect]
     Active Substance: LEVETIRACETAM
     Indication: SEIZURE
     Dosage: 3.5 MILLILITER, 2X/DAY (BID)
     Route: 048

REACTIONS (2)
  - Seizure [Not Recovered/Not Resolved]
  - Respiratory arrest [Fatal]
